FAERS Safety Report 4640289-7 (Version None)
Quarter: 2005Q2

REPORT INFORMATION
  Report Type: 
  Country: None (occurrence: None)
  Receive Date: 20050419
  Receipt Date: 20050406
  Transmission Date: 20051028
  Serious: Yes (Hospitalization)
  Sender: FDA-Public Use
  Company Number: 213792

PATIENT
  Age: 67 Year
  Sex: Male

DRUGS (10)
  1. RAPTIVA [Suspect]
     Indication: PSORIASIS
     Dosage: 125 MG, 1/WEEK, SUBCUTANEOUS
     Route: 058
     Dates: start: 20041001
  2. LEVOFLOXACIN [Concomitant]
  3. GABAPENTIN [Concomitant]
  4. OXYCODONE (OXYCODONE) [Concomitant]
  5. ASPIRIN [Concomitant]
  6. DIOVAN HCT [Concomitant]
  7. BUPROPION HYDROCHLORIDE (BUPROION HYDROCHLORIDE) [Concomitant]
  8. ZOCOR [Concomitant]
  9. CELEBREX (CELECOXIV) [Concomitant]
  10. HYDROXYZINE HCL (HYDROXYZINE HYDROCHLORIDE) [Concomitant]

REACTIONS (7)
  - ARTHROPOD BITE [None]
  - CELLULITIS [None]
  - GENERALISED OEDEMA [None]
  - PYREXIA [None]
  - SWELLING [None]
  - VOMITING [None]
  - WHITE BLOOD CELL COUNT INCREASED [None]
